FAERS Safety Report 9897446 (Version 2)
Quarter: 2014Q1

REPORT INFORMATION
  Report Type: Spontaneous
  Country: PL (occurrence: PL)
  Receive Date: 20140214
  Receipt Date: 20140324
  Transmission Date: 20141002
  Serious: Yes (Other)
  Sender: FDA-Public Use
  Company Number: PL-ROCHE-1344946

PATIENT
  Sex: Female

DRUGS (3)
  1. VEMURAFENIB [Suspect]
     Indication: PRODUCT USED FOR UNKNOWN INDICATION
     Route: 065
     Dates: start: 201203
  2. VEMURAFENIB [Suspect]
     Route: 065
  3. DACARBAZINE [Concomitant]

REACTIONS (18)
  - Rash papular [Unknown]
  - Erythema [Unknown]
  - Myalgia [Unknown]
  - Arthralgia [Unknown]
  - Skin lesion [Unknown]
  - Palmar-plantar erythrodysaesthesia syndrome [Unknown]
  - Arteriosclerosis [Unknown]
  - Electrocardiogram QT prolonged [Unknown]
  - Hypomagnesaemia [Unknown]
  - Vertigo [Unknown]
  - Visual impairment [Unknown]
  - Balance disorder [Unknown]
  - Metastases to central nervous system [Unknown]
  - General physical health deterioration [Unknown]
  - Blood lactate dehydrogenase increased [Unknown]
  - Dyspnoea [Unknown]
  - Fatigue [Unknown]
  - Loss of consciousness [Unknown]
